FAERS Safety Report 9034848 (Version 1)
Quarter: 2013Q1

REPORT INFORMATION
  Report Type: Spontaneous
  Country: US (occurrence: None)
  Receive Date: 20130116
  Receipt Date: 20130116
  Transmission Date: 20140127
  Serious: Yes (Hospitalization)
  Sender: FDA-Public Use
  Company Number: None

PATIENT
  Age: 56 Year
  Sex: Female
  Weight: 89 kg

DRUGS (2)
  1. WARFARIN [Suspect]
     Indication: ATRIAL FIBRILLATION
     Dosage: MG
     Route: 048
     Dates: start: 20120927, end: 20121113
  2. WARFARIN [Suspect]
     Indication: HEART VALVE REPLACEMENT
     Dosage: MG
     Route: 048
     Dates: start: 20120927, end: 20121113

REACTIONS (3)
  - Dizziness [None]
  - International normalised ratio increased [None]
  - Dizziness [None]
